FAERS Safety Report 6955418-X (Version None)
Quarter: 2010Q3

REPORT INFORMATION
  Report Type: 
  Country: None (occurrence: None)
  Receive Date: 20100830
  Receipt Date: 20100820
  Transmission Date: 20110219
  Serious: Yes (Hospitalization)
  Sender: FDA-Public Use
  Company Number: US-AMGEN-QUU392252

PATIENT
  Sex: Female
  Weight: 3.75 kg

DRUGS (2)
  1. ENBREL [Suspect]
     Route: 064
     Dates: start: 20030101
  2. LEFLUNOMIDE [Concomitant]
     Route: 064

REACTIONS (1)
  - UMBILICAL CORD AROUND NECK [None]
